FAERS Safety Report 5562694-7 (Version None)
Quarter: 2007Q4

REPORT INFORMATION
  Report Type: 
  Country: None (occurrence: None)
  Receive Date: 20071211
  Receipt Date: 20071211
  Transmission Date: 20080405
  Serious: Yes (Other)
  Sender: FDA-Public Use
  Company Number: None

PATIENT
  Age: 31 Year
  Sex: Female

DRUGS (4)
  1. ARIPIPRAZOLE [Suspect]
     Indication: SCHIZOPHRENIA, PARANOID TYPE
     Dosage: 15 MG  QDAY  PO
     Route: 048
  2. ARIPIPRAZOLE [Suspect]
     Indication: SCHIZOPHRENIA, PARANOID TYPE
     Dosage: 30 MG  QDAY  PO
     Route: 048
  3. OLANZAPINE [Concomitant]
  4. ZIPRASIDONE HCL [Concomitant]

REACTIONS (2)
  - NEUTROPENIA [None]
  - TREATMENT NONCOMPLIANCE [None]
